FAERS Safety Report 5315290-0 (Version None)
Quarter: 2007Q2

REPORT INFORMATION
  Report Type: 
  Country: None (occurrence: None)
  Receive Date: 20070502
  Receipt Date: 20070420
  Transmission Date: 20071010
  Serious: Yes (Other)
  Sender: FDA-Public Use
  Company Number: US-PFIZER INC-2007032793

PATIENT
  Sex: Male
  Weight: 86.363 kg

DRUGS (9)
  1. LIPITOR [Suspect]
     Indication: BLOOD CHOLESTEROL INCREASED
     Route: 048
     Dates: start: 20061101, end: 20070415
  2. ALTACE [Concomitant]
  3. INDERAL [Concomitant]
  4. HYDROCHLOROTHIAZIDE [Concomitant]
  5. VITAMIN E [Concomitant]
  6. GLUCOSAMINE [Concomitant]
  7. VITAMIN CAP [Concomitant]
  8. ZINC [Concomitant]
  9. ACETYLSALICYLIC ACID SRT [Concomitant]

REACTIONS (4)
  - ABNORMAL DREAMS [None]
  - EYE INJURY [None]
  - SLEEP DISORDER [None]
  - SLEEP WALKING [None]
